FAERS Safety Report 10556598 (Version 1)
Quarter: 2014Q4

REPORT INFORMATION
  Report Type: Spontaneous
  Country: US (occurrence: US)
  Receive Date: 20141031
  Receipt Date: 20141031
  Transmission Date: 20150529
  Serious: Yes (Hospitalization)
  Sender: FDA-Public Use
  Company Number: US-INCYTE CORPORATION-2014IN003205

PATIENT
  Age: 68 Year
  Sex: Male

DRUGS (20)
  1. GLYBURIDE. [Concomitant]
     Active Substance: GLYBURIDE
  2. JAKAFI [Suspect]
     Active Substance: RUXOLITINIB
     Dosage: 15 MG, BID
     Route: 048
     Dates: start: 20130828
  3. FUROSEMIDE. [Concomitant]
     Active Substance: FUROSEMIDE
  4. LYRICA [Concomitant]
     Active Substance: PREGABALIN
  5. WARFARIN [Concomitant]
     Active Substance: WARFARIN
  6. LANTUS [Concomitant]
     Active Substance: INSULIN GLARGINE
  7. KLOR-CON [Concomitant]
     Active Substance: POTASSIUM CHLORIDE
  8. NORVASC [Concomitant]
     Active Substance: AMLODIPINE BESYLATE
  9. SIMVASTATIN. [Concomitant]
     Active Substance: SIMVASTATIN
  10. METFORMIN [Concomitant]
     Active Substance: METFORMIN HYDROCHLORIDE
  11. SYNTHROID [Concomitant]
     Active Substance: LEVOTHYROXINE SODIUM
  12. CLONIDINE. [Concomitant]
     Active Substance: CLONIDINE
  13. DIGOXIN. [Concomitant]
     Active Substance: DIGOXIN
  14. NOVOLOG [Concomitant]
     Active Substance: INSULIN ASPART
  15. RANEXA [Concomitant]
     Active Substance: RANOLAZINE
  16. LOSARTAN                           /01121602/ [Concomitant]
     Active Substance: LOSARTAN
  17. CITALOPRAM [Concomitant]
     Active Substance: CITALOPRAM HYDROBROMIDE
  18. JANUVIA [Concomitant]
     Active Substance: SITAGLIPTIN PHOSPHATE
  19. SOTALOL. [Concomitant]
     Active Substance: SOTALOL
  20. LISINOPRIL. [Concomitant]
     Active Substance: LISINOPRIL

REACTIONS (1)
  - Cardiac failure congestive [Unknown]

NARRATIVE: CASE EVENT DATE: 20141025
